FAERS Safety Report 7360321-X (Version None)
Quarter: 2011Q1

REPORT INFORMATION
  Report Type: 
  Country: None (occurrence: None)
  Receive Date: 20110318
  Receipt Date: 20100928
  Transmission Date: 20110831
  Serious: Yes (Hospitalization)
  Sender: FDA-Public Use
  Company Number: US-BAYER-201028194NA

PATIENT
  Sex: Female
  Weight: 52.154 kg

DRUGS (6)
  1. IBUPROFEN [Concomitant]
  2. TRIAZOLAM [Concomitant]
  3. NSAID'S [Concomitant]
  4. YASMIN [Suspect]
     Indication: CONTRACEPTION
     Route: 048
     Dates: start: 20010701, end: 20080718
  5. FAMVIR [Concomitant]
  6. DIFLUCAN [Concomitant]

REACTIONS (19)
  - HIATUS HERNIA [None]
  - ACQUIRED OESOPHAGEAL WEB [None]
  - EMOTIONAL DISTRESS [None]
  - GASTRITIS [None]
  - CHEST PAIN [None]
  - PAIN IN EXTREMITY [None]
  - PALLOR [None]
  - HAEMATOCHEZIA [None]
  - DIZZINESS [None]
  - ASTHENIA [None]
  - VARICOSE VEIN [None]
  - ABDOMINAL PAIN UPPER [None]
  - LETHARGY [None]
  - DEEP VEIN THROMBOSIS [None]
  - GASTRIC HAEMORRHAGE [None]
  - FAECES DISCOLOURED [None]
  - DYSPNOEA [None]
  - INJECTION SITE PAIN [None]
  - ABDOMINAL DISCOMFORT [None]
